FAERS Safety Report 7681463-5 (Version None)
Quarter: 2011Q3

REPORT INFORMATION
  Report Type: 
  Country: None (occurrence: None)
  Receive Date: 20110812
  Receipt Date: 20110804
  Transmission Date: 20111222
  Serious: Yes (Hospitalization, Other)
  Sender: FDA-Public Use
  Company Number: GB-ABBOTT-10P-167-0621436-00

PATIENT
  Sex: Female

DRUGS (10)
  1. IMURAN [Concomitant]
     Indication: PRODUCT USED FOR UNKNOWN INDICATION
     Dosage: WITHHELD DURING SURGERY
  2. CO-DYDRAMOL [Concomitant]
     Indication: PRODUCT USED FOR UNKNOWN INDICATION
     Dates: start: 20070706
  3. MELOXICAM [Concomitant]
     Indication: PRODUCT USED FOR UNKNOWN INDICATION
     Dates: start: 20070706
  4. OMEPRAZOLE [Concomitant]
     Indication: PRODUCT USED FOR UNKNOWN INDICATION
     Dates: start: 20070706
  5. METHOTREXATE [Concomitant]
     Indication: PRODUCT USED FOR UNKNOWN INDICATION
     Dates: start: 20070701
  6. FOLIC ACID [Concomitant]
     Indication: PRODUCT USED FOR UNKNOWN INDICATION
     Dates: start: 20070706
  7. HUMIRA [Suspect]
  8. METHOTREXATE [Concomitant]
     Dosage: WITHHELD DURING SURGERY
     Dates: start: 20101201
  9. HYDROXYCHLOROQUINE [Concomitant]
     Indication: PRODUCT USED FOR UNKNOWN INDICATION
     Dates: start: 20070701
  10. HUMIRA [Suspect]
     Indication: RHEUMATOID ARTHRITIS
     Route: 058
     Dates: start: 20070701, end: 20090601

REACTIONS (12)
  - VOMITING [None]
  - POST PROCEDURAL INFECTION [None]
  - FALL [None]
  - ABDOMINAL PAIN [None]
  - CHOLECYSTITIS [None]
  - POSTOPERATIVE WOUND INFECTION [None]
  - INTESTINAL PERFORATION [None]
  - DIAPHRAGMATIC RUPTURE [None]
  - WOUND INFECTION [None]
  - LOWER RESPIRATORY TRACT INFECTION [None]
  - DIAPHRAGMATIC HERNIA [None]
  - HAEMOGLOBIN DECREASED [None]
